FAERS Safety Report 6725580-2 (Version None)
Quarter: 2010Q2

REPORT INFORMATION
  Report Type: 
  Country: None (occurrence: None)
  Receive Date: 20100514
  Receipt Date: 20100506
  Transmission Date: 20101027
  Serious: Yes (Other)
  Sender: FDA-Public Use
  Company Number: DE-JNJFOC-20100501853

PATIENT
  Age: 26 Year
  Sex: Female

DRUGS (1)
  1. TAVANIC [Suspect]
     Indication: PYELONEPHRITIS
     Route: 048

REACTIONS (6)
  - BACK PAIN [None]
  - DYSPNOEA [None]
  - EYE SWELLING [None]
  - HYPERHIDROSIS [None]
  - PAIN IN EXTREMITY [None]
  - PHARYNGEAL OEDEMA [None]
